FAERS Safety Report 9379191 (Version 3)
Quarter: 2013Q3

REPORT INFORMATION
  Report Type: Report from Study
  Country: JP (occurrence: JP)
  Receive Date: 20130702
  Receipt Date: 20130807
  Transmission Date: 20140515
  Serious: Yes (Death, Other)
  Sender: FDA-Public Use
  Company Number: JP-JNJFOC-20130619530

PATIENT
  Age: 77 Year
  Sex: Male
  Weight: 60 kg

DRUGS (15)
  1. URSO [Concomitant]
     Route: 048
  2. PREDNISOLONE [Concomitant]
     Indication: INTERSTITIAL LUNG DISEASE
     Route: 065
     Dates: end: 20130415
  3. LANTUS [Concomitant]
     Indication: DIABETES MELLITUS
     Route: 065
     Dates: end: 20130415
  4. APIDRA [Concomitant]
     Indication: DIABETES MELLITUS
     Route: 065
     Dates: end: 20130415
  5. ITRIZOLE [Suspect]
     Indication: FUNGAL INFECTION
     Route: 048
     Dates: start: 20130321, end: 20130331
  6. ITRIZOLE [Suspect]
     Indication: FUNGAL INFECTION
     Route: 048
     Dates: start: 20130316, end: 20130320
  7. ERYTHROMYCIN [Suspect]
     Indication: INTERSTITIAL LUNG DISEASE
     Route: 048
  8. GASCON [Concomitant]
     Indication: CONSTIPATION
     Route: 048
  9. FOSAMAC [Concomitant]
     Indication: OSTEOPOROSIS
     Route: 048
  10. LANSOPRAZOLE [Concomitant]
     Indication: GASTRITIS
     Route: 048
  11. BAKTAR [Concomitant]
     Indication: INTERSTITIAL LUNG DISEASE
     Route: 048
  12. FUROSEMIDE [Concomitant]
     Indication: HYPERTENSION
     Route: 048
  13. SPIRIVA [Concomitant]
     Indication: INTERSTITIAL LUNG DISEASE
     Route: 048
  14. ALLEGRA [Concomitant]
     Indication: DERMATITIS ALLERGIC
     Route: 048
  15. MUCOSOLVAN [Concomitant]
     Indication: EMPHYSEMA
     Route: 048

REACTIONS (2)
  - Interstitial lung disease [Fatal]
  - Hepatic function abnormal [Recovered/Resolved]
